FAERS Safety Report 15281706 (Version 1)
Quarter: 2018Q3

REPORT INFORMATION
  Report Type: Spontaneous
  Country: GB (occurrence: DE)
  Receive Date: 20180815
  Receipt Date: 20180815
  Transmission Date: 20181010
  Serious: Yes (Death, Life-Threatening, Other)
  Sender: FDA-Public Use
  Company Number: PHHY2017DE204517

PATIENT

DRUGS (16)
  1. GENTAMICIN. [Concomitant]
     Active Substance: GENTAMICIN
     Indication: NEONATAL INFECTION
     Dosage: UNK UNK,UNK
     Route: 065
  2. CASPOFUNGIN ACETATE. [Suspect]
     Active Substance: CASPOFUNGIN ACETATE
     Indication: FUNGAL INFECTION
  3. AMPHOTERICIN B. [Suspect]
     Active Substance: AMPHOTERICIN B
     Indication: FUNGAL INFECTION
  4. GENTAMICIN. [Concomitant]
     Active Substance: GENTAMICIN
     Indication: ANTIBIOTIC THERAPY
  5. VANCOMYCIN [Concomitant]
     Active Substance: VANCOMYCIN
     Indication: SEPSIS NEONATAL
     Route: 065
  6. PIPERACILLIN/TAZOBACTAM [Suspect]
     Active Substance: PIPERACILLIN SODIUM\TAZOBACTAM SODIUM
     Indication: FUNGAL PERITONITIS
     Dosage: 75 MG/KG, Q12H
     Route: 065
  7. AMPHOTERICIN B. [Suspect]
     Active Substance: AMPHOTERICIN B
     Indication: FUNGAL PERITONITIS
     Dosage: 3 MG/KG,QD
     Route: 065
  8. ALPROSTADIL. [Concomitant]
     Active Substance: ALPROSTADIL
     Indication: HYPOPLASTIC LEFT HEART SYNDROME
     Dosage: UNK
     Route: 065
  9. AMPICILLIN [Concomitant]
     Active Substance: AMPICILLIN
     Indication: ANTIBIOTIC PROPHYLAXIS
     Dosage: UNK UNK,UNK
     Route: 065
  10. MILRINONE [Concomitant]
     Active Substance: MILRINONE
     Indication: HYPOPLASTIC LEFT HEART SYNDROME
     Route: 065
  11. FLUCONAZOLE. [Suspect]
     Active Substance: FLUCONAZOLE
     Dosage: UNK UNK,UNK
     Route: 065
  12. FLUCONAZOLE. [Suspect]
     Active Substance: FLUCONAZOLE
     Dosage: UNK UNK,UNK
     Route: 065
  13. AMPICILLIN [Concomitant]
     Active Substance: AMPICILLIN
     Indication: NEONATAL INFECTION
  14. FLUCLOXACILLIN [Concomitant]
     Active Substance: FLUCLOXACILLIN
     Indication: ANTIBIOTIC THERAPY
     Dosage: UNK UNK,UNK
     Route: 065
  15. CASPOFUNGIN ACETATE. [Suspect]
     Active Substance: CASPOFUNGIN ACETATE
     Indication: FUNGAL INFECTION
     Dosage: 14 MG,QD
     Route: 065
  16. MEROPENEM. [Concomitant]
     Active Substance: MEROPENEM
     Indication: SEPSIS NEONATAL
     Route: 065

REACTIONS (8)
  - Multiple organ dysfunction syndrome [Fatal]
  - Condition aggravated [Fatal]
  - Drug resistance [Fatal]
  - Fungal infection [Fatal]
  - Generalised oedema [Fatal]
  - Peritonitis [Fatal]
  - Septic shock [Fatal]
  - Capillary leak syndrome [Fatal]
